FAERS Safety Report 5620533-X (Version None)
Quarter: 2008Q1

REPORT INFORMATION
  Report Type: 
  Country: None (occurrence: None)
  Receive Date: 20080208
  Receipt Date: 20080129
  Transmission Date: 20080703
  Serious: Yes (Death, Other)
  Sender: FDA-Public Use
  Company Number: US-ELI_LILLY_AND_COMPANY-US200712004693

PATIENT
  Sex: Female

DRUGS (4)
  1. CYMBALTA [Suspect]
     Indication: DEPRESSION
     Dosage: 60 MG, DAILY (1/D)
     Dates: start: 20070806
  2. CYMBALTA [Suspect]
     Dosage: 90 MG, DAILY (1/D)
  3. RISPERDAL [Concomitant]
     Indication: SLEEP DISORDER
     Dosage: 3 MG, EACH EVENING
  4. RISPERDAL [Concomitant]
     Dosage: 2 MG, EACH EVENING

REACTIONS (3)
  - COMPLETED SUICIDE [None]
  - PITUITARY TUMOUR [None]
  - WEIGHT DECREASED [None]
